FAERS Safety Report 6051508-7 (Version None)
Quarter: 2009Q1

REPORT INFORMATION
  Report Type: 
  Country: None (occurrence: None)
  Receive Date: 20090126
  Receipt Date: 20090116
  Transmission Date: 20090719
  Serious: Yes (Hospitalization)
  Sender: FDA-Public Use
  Company Number: A0764944A

PATIENT
  Age: 45 Year
  Sex: Female
  Weight: 98.2 kg

DRUGS (4)
  1. AVANDIA [Suspect]
     Dosage: 4MG TWICE PER DAY
     Route: 048
     Dates: start: 20010101, end: 20070301
  2. AVANDAMET [Suspect]
     Route: 048
     Dates: end: 20060101
  3. HUMALOG [Concomitant]
  4. BYETTA [Concomitant]

REACTIONS (6)
  - ACUTE CORONARY SYNDROME [None]
  - CAROTID ARTERY DISEASE [None]
  - CORONARY ARTERY DISEASE [None]
  - HEART INJURY [None]
  - ISCHAEMIA [None]
  - MYOCARDIAL INFARCTION [None]
